FAERS Safety Report 12876826 (Version 1)
Quarter: 2016Q4

REPORT INFORMATION
  Report Type: Spontaneous
  Country: NL (occurrence: NL)
  Receive Date: 20161024
  Receipt Date: 20161024
  Transmission Date: 20170207
  Serious: Yes (Hospitalization)
  Sender: FDA-Public Use
  Company Number: NL-TEVA-703434ISR

PATIENT
  Age: 56 Year
  Sex: Female

DRUGS (3)
  1. PREDNISONE. [Suspect]
     Active Substance: PREDNISONE
     Indication: SYSTEMIC LUPUS ERYTHEMATOSUS
     Dosage: 20 MILLIGRAM DAILY;
     Route: 048
  2. MYCOPHENOLATE MOFETIL. [Suspect]
     Active Substance: MYCOPHENOLATE MOFETIL
     Indication: SYSTEMIC LUPUS ERYTHEMATOSUS
     Dosage: 2500 MILLIGRAM DAILY;
     Route: 048
  3. METHYLPREDNISOLONE. [Suspect]
     Active Substance: METHYLPREDNISOLONE
     Indication: HISTOPLASMOSIS DISSEMINATED
     Dosage: 1000 MILLIGRAM DAILY;
     Route: 042

REACTIONS (10)
  - Fall [Recovered/Resolved]
  - Systemic lupus erythematosus [Recovered/Resolved]
  - Polyarthritis [Recovered/Resolved]
  - Hepatic failure [Recovered/Resolved]
  - Pulmonary embolism [Recovered/Resolved]
  - Respiratory failure [Recovered/Resolved]
  - Histoplasmosis disseminated [Recovered/Resolved]
  - Pyrexia [Recovered/Resolved]
  - Swelling [Recovered/Resolved]
  - Oral disorder [Recovered/Resolved]
